FAERS Safety Report 12900532 (Version 5)
Quarter: 2017Q1

REPORT INFORMATION
  Report Type: Report from Study
  Country: US (occurrence: US)
  Receive Date: 20161101
  Receipt Date: 20170313
  Transmission Date: 20170428
  Serious: Yes (Death, Hospitalization, Other)
  Sender: FDA-Public Use
  Company Number: US-ACTELION-A-NJ2016-144414

PATIENT
  Age: 72 Year
  Sex: Male

DRUGS (3)
  1. TYVASO [Concomitant]
     Active Substance: TREPROSTINIL
     Dosage: UNK
  2. OPSUMIT [Suspect]
     Active Substance: MACITENTAN
     Indication: PULMONARY ARTERIAL HYPERTENSION
     Dosage: 10 MG, QD
     Route: 048
     Dates: start: 20160111, end: 20161213
  3. PROCRIT [Concomitant]
     Active Substance: ERYTHROPOIETIN

REACTIONS (11)
  - Cerebrovascular accident [Recovered/Resolved]
  - Bacterial infection [Not Recovered/Not Resolved]
  - Renal failure [Unknown]
  - Clostridium difficile colitis [Unknown]
  - Malnutrition [Unknown]
  - Metastases to liver [Fatal]
  - Acute kidney injury [Unknown]
  - Dehydration [Unknown]
  - Hypotension [Unknown]
  - Metabolic encephalopathy [Unknown]
  - Pancreatic carcinoma [Fatal]

NARRATIVE: CASE EVENT DATE: 20161014
